FAERS Safety Report 7072236-5 (Version None)
Quarter: 2010Q4

REPORT INFORMATION
  Report Type: 
  Country: None (occurrence: None)
  Receive Date: 20101029
  Receipt Date: 20091228
  Transmission Date: 20110411
  Serious: No
  Sender: FDA-Public Use
  Company Number: A0836734A

PATIENT
  Age: 57 Year
  Sex: Male

DRUGS (5)
  1. ADVAIR DISKUS 100/50 [Suspect]
     Indication: ASTHMA
     Dosage: 250MCG TWICE PER DAY
     Route: 055
     Dates: start: 20010101
  2. ALBUTEROL [Concomitant]
  3. NEXIUM [Concomitant]
  4. ACETAMINOPHEN [Concomitant]
  5. HUMIRA [Concomitant]

REACTIONS (2)
  - ABDOMINAL DISCOMFORT [None]
  - INCREASED UPPER AIRWAY SECRETION [None]
